FAERS Safety Report 8409969-1 (Version None)
Quarter: 2012Q2

REPORT INFORMATION
  Report Type: 
  Country: None (occurrence: None)
  Receive Date: 20120605
  Receipt Date: 20120531
  Transmission Date: 20120825
  Serious: No
  Sender: FDA-Public Use
  Company Number: FR-JNJFOC-20120521022

PATIENT
  Age: 29 Year
  Sex: Female

DRUGS (1)
  1. DURAGESIC-100 [Suspect]
     Indication: PRODUCT USED FOR UNKNOWN INDICATION
     Route: 062

REACTIONS (4)
  - PAIN [None]
  - DRUG ADMINISTERED AT INAPPROPRIATE SITE [None]
  - WITHDRAWAL SYNDROME [None]
  - DRUG INEFFECTIVE [None]
